FAERS Safety Report 6097016-9 (Version None)
Quarter: 2009Q1

REPORT INFORMATION
  Report Type: 
  Country: None (occurrence: None)
  Receive Date: 20090227
  Receipt Date: 20090218
  Transmission Date: 20090719
  Serious: Yes (Hospitalization, Other)
  Sender: FDA-Public Use
  Company Number: PHHY2009JP02390

PATIENT
  Sex: Male
  Weight: 71 kg

DRUGS (9)
  1. LAMISIL [Suspect]
     Dosage: 125 MG, QD
     Route: 048
     Dates: start: 20081121, end: 20081207
  2. RINDERON [Concomitant]
     Dosage: 1.5 MG
     Route: 048
     Dates: start: 20081208
  3. RINDERON [Concomitant]
     Dosage: 0.5 MG/DAY
  4. SELBEX [Concomitant]
     Indication: GASTRITIS PROPHYLAXIS
     Dosage: 3 DF
     Route: 048
     Dates: start: 20081208
  5. ANTIHYPERTENSIVE DRUGS [Concomitant]
  6. ITOROL [Concomitant]
     Indication: ANGINA PECTORIS
     Dosage: 40 MG
     Route: 048
  7. BUFFERIN [Concomitant]
     Indication: THROMBOSIS PROPHYLAXIS
     Dosage: 81 MG
     Route: 048
  8. LIPITOR [Concomitant]
     Indication: HYPERLIPIDAEMIA
     Route: 048
  9. MEXILETINE HYDROCHLORIDE [Concomitant]
     Indication: ARRHYTHMIA
     Route: 048

REACTIONS (17)
  - AGEUSIA [None]
  - BLOOD PRESSURE INCREASED [None]
  - BODY TEMPERATURE INCREASED [None]
  - C-REACTIVE PROTEIN INCREASED [None]
  - DEHYDRATION [None]
  - DIARRHOEA [None]
  - ERYTHEMA [None]
  - ERYTHEMA MULTIFORME [None]
  - HEPATIC FUNCTION ABNORMAL [None]
  - HYPOAESTHESIA [None]
  - MUCOUS MEMBRANE DISORDER [None]
  - ORAL PAIN [None]
  - RASH [None]
  - RASH GENERALISED [None]
  - RASH PAPULAR [None]
  - SKIN EXFOLIATION [None]
  - WEIGHT DECREASED [None]
